FAERS Safety Report 23934276 (Version 2)
Quarter: 2024Q2

REPORT INFORMATION
  Report Type: Spontaneous
  Country: PT (occurrence: PT)
  Receive Date: 20240603
  Receipt Date: 20240611
  Transmission Date: 20240716
  Serious: Yes (Other)
  Sender: FDA-Public Use
  Company Number: PT-AMERICAN REGENT INC-2024002014

PATIENT
  Age: 46 Year
  Sex: Female

DRUGS (1)
  1. FERINJECT [Suspect]
     Active Substance: FERRIC CARBOXYMALTOSE
     Indication: Product used for unknown indication
     Dosage: DOSAGE UNKNOWN (IT IS ONLY KNOWN THAT IT WAS ADMINISTERED OVER 30 MINUTES)
     Route: 042
     Dates: start: 20240402, end: 20240402

REACTIONS (1)
  - Throat irritation [Recovered/Resolved]

NARRATIVE: CASE EVENT DATE: 20240402
